FAERS Safety Report 18135395 (Version 1)
Quarter: 2020Q3

REPORT INFORMATION
  Report Type: Spontaneous
  Country: US (occurrence: US)
  Receive Date: 20200811
  Receipt Date: 20200811
  Transmission Date: 20201103
  Serious: Yes (Hospitalization, Other)
  Sender: FDA-Public Use
  Company Number: US-NOVOPROD-744992

PATIENT
  Age: 65 Year
  Sex: Female

DRUGS (2)
  1. NOVOLIN 70/30 [Suspect]
     Active Substance: INSULIN HUMAN
     Indication: DIABETES MELLITUS
     Dosage: 20 IU, TID
     Route: 065
  2. NOVOLIN R [Suspect]
     Active Substance: INSULIN HUMAN
     Indication: DIABETES MELLITUS
     Dosage: 15 IU, TID
     Route: 065

REACTIONS (9)
  - Malaise [Unknown]
  - Dizziness [Unknown]
  - Blood glucose abnormal [Unknown]
  - Rib fracture [Recovering/Resolving]
  - Vision blurred [Unknown]
  - Fall [Unknown]
  - Dizziness [Unknown]
  - Myocardial infarction [Recovering/Resolving]
  - Heart rate increased [Recovering/Resolving]

NARRATIVE: CASE EVENT DATE: 20180417
